FAERS Safety Report 7451210-0 (Version None)
Quarter: 2011Q2

REPORT INFORMATION
  Report Type: 
  Country: None (occurrence: None)
  Receive Date: 20110422
  Receipt Date: 20110414
  Transmission Date: 20111010
  Serious: Yes (Hospitalization, Other)
  Sender: FDA-Public Use
  Company Number: 2010SP041962

PATIENT
  Age: 30 Year
  Sex: Female
  Weight: 65.7716 kg

DRUGS (4)
  1. NAPROSYN [Suspect]
     Indication: DYSMENORRHOEA
     Dates: start: 20070101
  2. VICODIN [Concomitant]
  3. ANAPROX [Concomitant]
  4. NUVARING [Suspect]
     Indication: DYSFUNCTIONAL UTERINE BLEEDING
     Dates: start: 20060406, end: 20080731

REACTIONS (23)
  - FALL [None]
  - INCORRECT DOSE ADMINISTERED [None]
  - FOOT FRACTURE [None]
  - DEEP VEIN THROMBOSIS [None]
  - ILEUS [None]
  - MIGRAINE [None]
  - COUGH [None]
  - GASTROENTERITIS [None]
  - DRUG EFFECT DECREASED [None]
  - INTENTIONAL DRUG MISUSE [None]
  - THROMBOSIS [None]
  - HAEMORRHAGE INTRACRANIAL [None]
  - SUPERIOR SAGITTAL SINUS THROMBOSIS [None]
  - HAEMORRHAGIC CEREBRAL INFARCTION [None]
  - GRAND MAL CONVULSION [None]
  - OTITIS MEDIA ACUTE [None]
  - THROMBOTIC STROKE [None]
  - ABDOMINAL PAIN [None]
  - SUBARACHNOID HAEMORRHAGE [None]
  - PROTHROMBIN LEVEL INCREASED [None]
  - CONSTIPATION [None]
  - CEREBRAL HAEMATOMA [None]
  - ENCEPHALOMALACIA [None]
